FAERS Safety Report 6760192-6 (Version None)
Quarter: 2010Q2

REPORT INFORMATION
  Report Type: 
  Country: None (occurrence: None)
  Receive Date: 20100608
  Receipt Date: 19990506
  Transmission Date: 20101027
  Serious: No
  Sender: FDA-Public Use
  Company Number: 1999SUS0475

PATIENT
  Sex: Female

DRUGS (1)
  1. SUSTIVA [Suspect]
     Indication: HIV INFECTION
     Dosage: 600 MG AES#DOSE_FREQUENCY: QD
     Route: 048
     Dates: start: 19980915, end: 19990506

REACTIONS (1)
  - PREGNANCY [None]
